FAERS Safety Report 9133688 (Version 1)
Quarter: 2013Q1

REPORT INFORMATION
  Report Type: Spontaneous
  Country: IT (occurrence: IT)
  Receive Date: 20130303
  Receipt Date: 20130303
  Transmission Date: 20140127
  Serious: Yes (Life-Threatening)
  Sender: FDA-Public Use
  Company Number: IT-TEVA-388524ISR

PATIENT
  Age: 62 Year
  Sex: Male

DRUGS (1)
  1. CEFAZOLINA SODICA [Suspect]
     Indication: ANTIBIOTIC PROPHYLAXIS
     Dosage: 2 GRAM DAILY;
     Route: 042
     Dates: start: 20130117, end: 20130117

REACTIONS (1)
  - Laryngeal oedema [Recovered/Resolved]
